FAERS Safety Report 11992045 (Version 1)
Quarter: 2016Q1

REPORT INFORMATION
  Report Type: Spontaneous
  Country: US (occurrence: US)
  Receive Date: 20160203
  Receipt Date: 20160203
  Transmission Date: 20160526
  Serious: No
  Sender: FDA-Public Use
  Company Number: US-JNJFOC-20151212603

PATIENT
  Age: 72 Year
  Sex: Female
  Weight: 53.52 kg

DRUGS (2)
  1. TYLENOL EXTRA STRENGTH [Suspect]
     Active Substance: ACETAMINOPHEN
     Indication: ARTHRALGIA
     Route: 048
     Dates: start: 20151212, end: 20151212
  2. VITAMIN E NOS [Concomitant]
     Indication: NUTRITIONAL SUPPLEMENTATION
     Route: 065

REACTIONS (3)
  - Product packaging issue [Unknown]
  - Product package associated injury [Recovering/Resolving]
  - Product container issue [Unknown]

NARRATIVE: CASE EVENT DATE: 20151212
